FAERS Safety Report 17537342 (Version 1)
Quarter: 2020Q1

REPORT INFORMATION
  Report Type: Spontaneous
  Country: CN (occurrence: CN)
  Receive Date: 20200313
  Receipt Date: 20200313
  Transmission Date: 20200409
  Serious: Yes (Hospitalization)
  Sender: FDA-Public Use
  Company Number: CN-ABBVIE-20K-035-3313726-00

PATIENT
  Age: 54 Year
  Sex: Male

DRUGS (3)
  1. ALUVIA 200/50 [Suspect]
     Active Substance: LOPINAVIR\RITONAVIR
     Indication: CORONA VIRUS INFECTION
     Route: 048
     Dates: start: 20200130, end: 20200205
  2. ALUVIA 200/50 [Suspect]
     Active Substance: LOPINAVIR\RITONAVIR
     Indication: PNEUMONIA
  3. RIBAVIRIN. [Suspect]
     Active Substance: RIBAVIRIN
     Indication: PRODUCT USED FOR UNKNOWN INDICATION
     Route: 065
     Dates: end: 20200205

REACTIONS (4)
  - Chest pain [Recovering/Resolving]
  - Off label use [Unknown]
  - Sinoatrial block [Recovering/Resolving]
  - Brain natriuretic peptide increased [Unknown]

NARRATIVE: CASE EVENT DATE: 2020
